FAERS Safety Report 8194371-0 (Version None)
Quarter: 2012Q1

REPORT INFORMATION
  Report Type: 
  Country: None (occurrence: None)
  Receive Date: 20120308
  Receipt Date: 20120227
  Transmission Date: 20120608
  Serious: Yes (Life-Threatening, Other)
  Sender: FDA-Public Use
  Company Number: JP-ABBOTT-12P-087-0912209-00

PATIENT
  Sex: Male
  Weight: 61 kg

DRUGS (21)
  1. PROPOFOL [Concomitant]
     Dosage: 3 MG/KG/H
     Route: 041
     Dates: start: 20110421, end: 20110421
  2. NOREPINEPHRINE BITARTRATE [Concomitant]
     Indication: VASODILATATION
  3. ISOSORBIDE DINITRATE [Concomitant]
     Indication: VASODILATATION
  4. MIDAZOLAM [Concomitant]
     Indication: SEDATION
     Route: 042
     Dates: start: 20110421, end: 20110421
  5. DOBUTAMINE HCL [Concomitant]
     Indication: CARDIAC DISORDER
     Route: 041
     Dates: start: 20110421, end: 20110421
  6. NICORANDIL [Concomitant]
     Indication: VASODILATATION
  7. ISOSORBIDE DINITRATE [Concomitant]
     Indication: CARDIAC DISORDER
     Route: 041
     Dates: start: 20110421, end: 20110421
  8. PROPOFOL [Concomitant]
     Indication: SEDATION
     Dosage: 3 MG/KG/H
     Route: 041
     Dates: start: 20110421, end: 20110421
  9. VECURONIUM BROMIDE [Concomitant]
     Indication: HYPOTONIA
     Route: 042
     Dates: start: 20110421, end: 20110421
  10. DOBUTAMINE HCL [Concomitant]
     Indication: VASODILATATION
  11. NOREPINEPHRINE BITARTRATE [Concomitant]
     Indication: CARDIAC DISORDER
     Route: 041
     Dates: start: 20110421, end: 20110421
  12. OLPRINONE HYDROCHLORIDE HYDRATE [Concomitant]
     Indication: CARDIAC DISORDER
     Route: 041
     Dates: start: 20110421, end: 20110421
  13. SEVOFLURANE [Suspect]
     Indication: SEDATION
     Dosage: 1 TO 1.5%
     Route: 055
     Dates: start: 20110421, end: 20110421
  14. DOPAMINE HCL [Concomitant]
     Indication: VASODILATATION
  15. OLPRINONE HYDROCHLORIDE HYDRATE [Concomitant]
     Indication: VASODILATATION
  16. DILTIAZEM HYDROCHLORIDE [Concomitant]
     Indication: VASODILATATION
  17. FENTANYL CITRATE [Concomitant]
     Indication: ANALGESIC THERAPY
     Route: 042
     Dates: start: 20110421, end: 20110421
  18. REMIFENTANIL HYDROCHLORIDE [Concomitant]
     Indication: ANALGESIC THERAPY
     Route: 041
     Dates: start: 20110421, end: 20110421
  19. DOPAMINE HCL [Concomitant]
     Indication: CARDIAC DISORDER
     Route: 041
     Dates: start: 20110421, end: 20110421
  20. DILTIAZEM HYDROCHLORIDE [Concomitant]
     Indication: CARDIAC DISORDER
     Route: 041
     Dates: start: 20110421, end: 20110421
  21. NICORANDIL [Concomitant]
     Indication: CARDIAC DISORDER
     Route: 041
     Dates: start: 20110421, end: 20110421

REACTIONS (3)
  - ARTERIOSPASM CORONARY [None]
  - ATRIOVENTRICULAR BLOCK [None]
  - HYPOTENSION [None]
